FAERS Safety Report 5679476-8 (Version None)
Quarter: 2008Q1

REPORT INFORMATION
  Report Type: 
  Country: None (occurrence: None)
  Receive Date: 20080325
  Receipt Date: 20080313
  Transmission Date: 20080703
  Serious: Yes (Other)
  Sender: FDA-Public Use
  Company Number: GB-PFIZER INC-2008024507

PATIENT
  Age: 53 Year
  Sex: Female

DRUGS (5)
  1. LYRICA [Suspect]
     Dosage: DAILY DOSE:300MG-FREQ:DAILY
     Route: 048
  2. SEREVENT [Concomitant]
     Route: 055
  3. LORATADINE [Concomitant]
  4. ALL OTHER THERAPEUTIC PRODUCTS [Concomitant]
  5. GLUCOSAMINE W/CHONDROITIN SULFATES [Concomitant]

REACTIONS (4)
  - EYE INFECTION [None]
  - FATIGUE [None]
  - NAIL GROWTH ABNORMAL [None]
  - WEIGHT INCREASED [None]
